FAERS Safety Report 12399909 (Version 2)
Quarter: 2016Q2

REPORT INFORMATION
  Report Type: Report from Study
  Country: US (occurrence: US)
  Receive Date: 20160524
  Receipt Date: 20160602
  Transmission Date: 20160815
  Serious: Yes (Other)
  Sender: FDA-Public Use
  Company Number: US-EXELIXIS-CABO-16006434

PATIENT
  Sex: Female

DRUGS (5)
  1. COMETRIQ [Suspect]
     Active Substance: CABOZANTINIB S-MALATE
     Indication: LUNG NEOPLASM MALIGNANT
     Dosage: 60 MG, QD
     Route: 048
     Dates: start: 20160416, end: 2016
  2. COMETRIQ [Suspect]
     Active Substance: CABOZANTINIB S-MALATE
     Dosage: 60 MG, QD
     Route: 048
     Dates: start: 2016
  3. COMETRIQ [Suspect]
     Active Substance: CABOZANTINIB S-MALATE
     Indication: BONE CANCER
     Dosage: 60 MG, QD
     Route: 048
     Dates: start: 2016, end: 2016
  4. DEXAMETHASONE. [Concomitant]
     Active Substance: DEXAMETHASONE
  5. ZOLOFT P [Concomitant]

REACTIONS (11)
  - Skin infection [Unknown]
  - Oral pain [Unknown]
  - Nasal disorder [Unknown]
  - Off label use [Unknown]
  - Seizure [Unknown]
  - Alopecia [Unknown]
  - Anal fissure [Not Recovered/Not Resolved]
  - Pyrexia [Unknown]
  - Drug interaction [Unknown]
  - Loose tooth [Unknown]
  - Nasal dryness [Unknown]
